FAERS Safety Report 11290202 (Version 3)
Quarter: 2015Q3

REPORT INFORMATION
  Report Type: Spontaneous
  Country: US (occurrence: US)
  Receive Date: 20150721
  Receipt Date: 20150908
  Transmission Date: 20151125
  Serious: Yes (Other)
  Sender: FDA-Public Use
  Company Number: US-ELI_LILLY_AND_COMPANY-US201507002050

PATIENT
  Age: 50 Year
  Sex: Male
  Weight: 112.47 kg

DRUGS (3)
  1. HUMALOG [Suspect]
     Active Substance: INSULIN LISPRO
     Indication: TYPE 1 DIABETES MELLITUS
     Dosage: 90 U, QD
     Route: 058
     Dates: start: 2014
  2. HUMALOG [Suspect]
     Active Substance: INSULIN LISPRO
     Dosage: 90 U, QD
     Route: 058
     Dates: start: 2014
  3. HUMALOG [Suspect]
     Active Substance: INSULIN LISPRO
     Dosage: 90 U, QD
     Route: 058
     Dates: start: 2014

REACTIONS (3)
  - Drug ineffective [Recovered/Resolved]
  - Hyperglycaemia [Recovered/Resolved]
  - Blood glucose increased [Recovered/Resolved]

NARRATIVE: CASE EVENT DATE: 20150630
